FAERS Safety Report 13284901 (Version 1)
Quarter: 2017Q1

REPORT INFORMATION
  Report Type: Spontaneous
  Country: US (occurrence: US)
  Receive Date: 20170301
  Receipt Date: 20170301
  Transmission Date: 20170428
  Serious: No
  Sender: FDA-Public Use
  Company Number: US-EMD SERONO-8145128

PATIENT
  Age: 52 Year
  Sex: Female

DRUGS (1)
  1. REBIF [Suspect]
     Active Substance: INTERFERON BETA-1A
     Indication: PRODUCT USED FOR UNKNOWN INDICATION

REACTIONS (8)
  - Chills [Unknown]
  - Pain [Unknown]
  - Fatigue [Unknown]
  - Injection site reaction [Unknown]
  - Photophobia [Unknown]
  - Neuropathy peripheral [Unknown]
  - Memory impairment [Unknown]
  - Headache [Unknown]
